FAERS Safety Report 22256241 (Version 1)
Quarter: 2023Q2

REPORT INFORMATION
  Report Type: Spontaneous
  Country: US (occurrence: None)
  Receive Date: 20230425
  Receipt Date: 20230425
  Transmission Date: 20230722
  Serious: Yes (Hospitalization)
  Sender: FDA-Public Use
  Company Number: None

PATIENT
  Sex: Female

DRUGS (1)
  1. CAPECITABINE [Suspect]
     Active Substance: CAPECITABINE
     Indication: Breast cancer female
     Dosage: TAKE 3 TABLETS BY MOUTH IN THE MORNING AND TAKE 1 TABLET IN THE EVENING WITH FOOD FOR 14 DAYS FOLLO
     Route: 048
     Dates: start: 202304

REACTIONS (3)
  - Diarrhoea [None]
  - Stomatitis [None]
  - Dehydration [None]
